FAERS Safety Report 9991609 (Version 2)
Quarter: 2016Q3

REPORT INFORMATION
  Report Type: Spontaneous
  Country: JP (occurrence: JP)
  Receive Date: 20140310
  Receipt Date: 20160823
  Transmission Date: 20161109
  Serious: Yes (Other)
  Sender: FDA-Public Use
  Company Number: JP-SA-2014SA028783

PATIENT
  Age: 89 Year
  Sex: Male

DRUGS (2)
  1. BCG FOR IMMUNOTHERAPY [Suspect]
     Active Substance: BACILLUS CALMETTE-GUERIN ANTIGEN, UNSPECIFIED SUBSTRAIN
     Indication: BLADDER CANCER
     Route: 043
  2. ENDOCRINE THERAPY [Concomitant]
     Indication: PROSTATE CANCER
     Route: 065

REACTIONS (6)
  - Abscess [Recovered/Resolved]
  - Skin lesion [Recovered/Resolved]
  - Epididymitis tuberculous [Recovered/Resolved]
  - Scrotal disorder [Recovered/Resolved]
  - Infected fistula [Recovered/Resolved]
  - Fistula discharge [Recovered/Resolved]
